FAERS Safety Report 24077840 (Version 2)
Quarter: 2024Q3

REPORT INFORMATION
  Report Type: Spontaneous
  Country: US (occurrence: US)
  Receive Date: 20240711
  Receipt Date: 20240830
  Transmission Date: 20241017
  Serious: No
  Sender: GRANULES INDIA
  Company Number: US-GRANULES-US-2024GRASPO00261

PATIENT

DRUGS (1)
  1. DEXTROAMPHET SACCHARAT, AMPHET ASPARTATE, DEXTROAMPHET SULFATE AND AMP [Suspect]
     Active Substance: AMPHETAMINE ASPARTATE\AMPHETAMINE SULFATE\DEXTROAMPHETAMINE SACCHARATE\DEXTROAMPHETAMINE SULFATE
     Indication: Product used for unknown indication
     Route: 065
     Dates: start: 20240627, end: 202406

REACTIONS (18)
  - Rhinorrhoea [Unknown]
  - Eye pruritus [Unknown]
  - Lacrimation increased [Unknown]
  - Nasal pruritus [Unknown]
  - Secretion discharge [Unknown]
  - Anxiety [Unknown]
  - Brain fog [Unknown]
  - Balance disorder [Unknown]
  - Lymphadenopathy [Unknown]
  - Condition aggravated [Unknown]
  - Hypersensitivity [Unknown]
  - Muscle spasms [Unknown]
  - Muscle twitching [Unknown]
  - Tremor [Unknown]
  - Tachycardia [Unknown]
  - Depression [Unknown]
  - Drug ineffective [Unknown]
  - Product substitution issue [Unknown]

NARRATIVE: CASE EVENT DATE: 20240601
